FAERS Safety Report 18052060 (Version 1)
Quarter: 2020Q3

REPORT INFORMATION
  Report Type: Spontaneous
  Country: US (occurrence: US)
  Receive Date: 20200721
  Receipt Date: 20200721
  Transmission Date: 20201103
  Serious: No
  Sender: FDA-Public Use
  Company Number: US-LUNDBECK-DKLU3018768

PATIENT
  Age: 77 Year
  Sex: Male

DRUGS (3)
  1. NORTHERA [Suspect]
     Active Substance: DROXIDOPA
     Indication: PARKINSON^S DISEASE
     Route: 048
     Dates: start: 20200711
  2. NORTHERA [Suspect]
     Active Substance: DROXIDOPA
     Indication: ORTHOSTATIC HYPOTENSION
     Route: 048
     Dates: start: 20200713
  3. NORTHERA [Suspect]
     Active Substance: DROXIDOPA
     Route: 048
     Dates: start: 20200714

REACTIONS (4)
  - Agitation [Recovered/Resolved]
  - Confusional state [Recovered/Resolved]
  - Therapeutic response decreased [Unknown]
  - Memory impairment [Recovered/Resolved]

NARRATIVE: CASE EVENT DATE: 20200713
